FAERS Safety Report 5340867-6 (Version None)
Quarter: 2007Q2

REPORT INFORMATION
  Report Type: 
  Country: None (occurrence: None)
  Receive Date: 20070405
  Receipt Date: 20061116
  Transmission Date: 20071010
  Serious: No
  Sender: FDA-Public Use
  Company Number: US200611003381

PATIENT
  Age: 41 Year
  Sex: Female

DRUGS (3)
  1. CYMBALTA [Suspect]
     Indication: FIBROMYALGIA
     Dosage: 60 MG, DAILY (1/D); ORAL
     Route: 048
     Dates: start: 20061106, end: 20061106
  2. LEVOXYL [Concomitant]
  3. INDERAL [Concomitant]

REACTIONS (6)
  - DIARRHOEA [None]
  - FATIGUE [None]
  - HANGOVER [None]
  - LETHARGY [None]
  - MYDRIASIS [None]
  - NAUSEA [None]
